FAERS Safety Report 12782183 (Version 1)
Quarter: 2016Q3

REPORT INFORMATION
  Report Type: Report from Study
  Country: US (occurrence: US)
  Receive Date: 20160927
  Receipt Date: 20160927
  Transmission Date: 20161109
  Serious: Yes (Other)
  Sender: FDA-Public Use
  Company Number: US-ROCHE-1834113

PATIENT
  Age: 75 Year
  Sex: Female
  Weight: 64.1 kg

DRUGS (7)
  1. BEVACIZUMAB [Suspect]
     Active Substance: BEVACIZUMAB
     Dosage: OVER 30-90 MINUTES ON DAY 1?COURSE ID 2
     Route: 042
     Dates: start: 20100728
  2. IXABEPILONE [Suspect]
     Active Substance: IXABEPILONE
     Dosage: OVER 1 HOUR ON DAY 1?COURSE ID 3
     Route: 042
     Dates: start: 20100825, end: 20100825
  3. BEVACIZUMAB [Suspect]
     Active Substance: BEVACIZUMAB
     Indication: ENDOMETRIAL CANCER
     Dosage: OVER 30-90 MINUTES ON DAY 1?COURSE ID 1
     Route: 042
     Dates: start: 20100630
  4. CARBOPLATIN. [Suspect]
     Active Substance: CARBOPLATIN
     Indication: ENDOMETRIAL CANCER
     Dosage: OVER 30 MINUTES ON DAY 1
     Route: 042
  5. IXABEPILONE [Suspect]
     Active Substance: IXABEPILONE
     Dosage: OVER 1 HOUR ON DAY 1?COURSE ID 2
     Route: 042
     Dates: start: 20100728
  6. BEVACIZUMAB [Suspect]
     Active Substance: BEVACIZUMAB
     Dosage: OVER 30-90 MINUTES ON DAY 1?COURSE ID 3
     Route: 042
     Dates: start: 20100825, end: 20100825
  7. IXABEPILONE [Suspect]
     Active Substance: IXABEPILONE
     Indication: ENDOMETRIAL CANCER
     Dosage: OVER 1 HOUR ON DAY 1?COURSE ID 1
     Route: 042
     Dates: start: 20100630

REACTIONS (5)
  - Blood bilirubin increased [Unknown]
  - Neutrophil count decreased [Unknown]
  - Platelet count decreased [Unknown]
  - White blood cell count decreased [Unknown]
  - Anaemia [Unknown]
